FAERS Safety Report 4583409-5 (Version None)
Quarter: 2005Q1

REPORT INFORMATION
  Report Type: 
  Country: None (occurrence: None)
  Receive Date: 20050211
  Receipt Date: 20050131
  Transmission Date: 20050727
  Serious: Yes (Hospitalization)
  Sender: FDA-Public Use
  Company Number: 2005CG00234

PATIENT
  Age: 84 Year
  Sex: Female

DRUGS (3)
  1. ZESTORETIC [Suspect]
     Dosage: 20 + 12.5 MG
  2. CORDARONE [Suspect]
  3. ZOCOR [Suspect]
     Dates: end: 20050121

REACTIONS (4)
  - ASTHENIA [None]
  - DRUG TOXICITY [None]
  - INFLAMMATION [None]
  - INTERSTITIAL LUNG DISEASE [None]
